FAERS Safety Report 15963433 (Version 2)
Quarter: 2020Q1

REPORT INFORMATION
  Report Type: Spontaneous
  Country: US (occurrence: US)
  Receive Date: 20190214
  Receipt Date: 20200302
  Transmission Date: 20200409
  Serious: Yes (Other)
  Sender: FDA-Public Use
  Company Number: US-ALLERGAN-1808224US

PATIENT
  Age: 84 Year
  Sex: Male

DRUGS (1)
  1. OZURDEX [Suspect]
     Active Substance: DEXAMETHASONE
     Indication: MACULAR OEDEMA
     Dosage: 0.7 MG, SINGLE
     Route: 031
     Dates: start: 20171220, end: 20171220

REACTIONS (7)
  - Lens dislocation [Not Recovered/Not Resolved]
  - Keratitis [Not Recovered/Not Resolved]
  - Drug ineffective [Unknown]
  - Device dislocation [Unknown]
  - Retinal oedema [Not Recovered/Not Resolved]
  - Vitreous floaters [Unknown]
  - Intraocular pressure increased [Not Recovered/Not Resolved]

NARRATIVE: CASE EVENT DATE: 2018
